FAERS Safety Report 14161867 (Version 3)
Quarter: 2017Q4

REPORT INFORMATION
  Report Type: Report from Study
  Country: JP (occurrence: JP)
  Receive Date: 20171106
  Receipt Date: 20171211
  Transmission Date: 20180321
  Serious: Yes (Death)
  Sender: FDA-Public Use
  Company Number: JP-OTSUKA-2017_024189

PATIENT
  Age: 83 Year
  Sex: Female
  Weight: 41.5 kg

DRUGS (19)
  1. SPIRONOLACTONE. [Suspect]
     Active Substance: SPIRONOLACTONE
     Dosage: 25 MG, QD
     Route: 048
     Dates: start: 20170111, end: 20170305
  2. LANSOPRAZOLE. [Concomitant]
     Active Substance: LANSOPRAZOLE
     Indication: PRODUCT USED FOR UNKNOWN INDICATION
     Dosage: 30 MG, QD
     Route: 048
  3. FERROMIA [Concomitant]
     Active Substance: SODIUM FERROUS CITRATE
     Indication: PRODUCT USED FOR UNKNOWN INDICATION
     Dosage: 50 MG, QD
     Route: 048
  4. SPIRONOLACTONE. [Suspect]
     Active Substance: SPIRONOLACTONE
     Indication: FLUID RETENTION
     Dosage: 50 MG, QD
     Route: 048
     Dates: end: 20161223
  5. AZILVA [Concomitant]
     Active Substance: AZILSARTAN KAMEDOXOMIL
     Indication: PRODUCT USED FOR UNKNOWN INDICATION
     Dosage: 40 MG, QD
     Route: 048
  6. ADALAT [Concomitant]
     Active Substance: NIFEDIPINE
     Indication: PRODUCT USED FOR UNKNOWN INDICATION
     Dosage: 40 MG, QD
     Route: 048
  7. SEROQUEL [Concomitant]
     Active Substance: QUETIAPINE FUMARATE
     Indication: PRODUCT USED FOR UNKNOWN INDICATION
     Dosage: 25 MG, QD
     Route: 048
  8. FUROSEMIDE. [Suspect]
     Active Substance: FUROSEMIDE
     Indication: FLUID RETENTION
     Dosage: 10 MG, QD
     Route: 048
     Dates: start: 20170111
  9. MIYA-BM [Concomitant]
     Active Substance: CLOSTRIDIUM BUTYRICUM SPORES STRAIN M-55
     Indication: PRODUCT USED FOR UNKNOWN INDICATION
     Dosage: 3 PACKAGES, QD
     Route: 048
  10. ETIZOLAM [Concomitant]
     Active Substance: ETIZOLAM
     Indication: PRODUCT USED FOR UNKNOWN INDICATION
     Dosage: 0.5 MG, QD
     Route: 048
  11. ALBUMIN [Concomitant]
     Active Substance: ALBUMIN HUMAN
     Indication: HYPOALBUMINAEMIA
     Dosage: 50 ML, QD
     Route: 042
     Dates: start: 20161202, end: 20161206
  12. TOLVAPTAN [Suspect]
     Active Substance: TOLVAPTAN
     Indication: FLUID RETENTION
     Dosage: 1.875 MG, QD, MORNING
     Route: 048
     Dates: start: 20161221, end: 20170419
  13. FUROSEMIDE. [Concomitant]
     Active Substance: FUROSEMIDE
     Indication: FLUID RETENTION
     Dosage: 20 MG, QD
     Route: 048
     Dates: end: 20170110
  14. TOLVAPTAN [Suspect]
     Active Substance: TOLVAPTAN
     Dosage: 3.75 MG, QD, MORNING
     Route: 048
     Dates: start: 20161217, end: 20161220
  15. TOLVAPTAN [Suspect]
     Active Substance: TOLVAPTAN
     Dosage: 7.5 MG, QD, MORNING
     Route: 048
     Dates: start: 20161215, end: 20161216
  16. SPIRONOLACTONE. [Suspect]
     Active Substance: SPIRONOLACTONE
     Indication: FLUID RETENTION
     Dosage: 75 MG, QD
     Route: 048
     Dates: start: 20161224, end: 20170110
  17. URSO [Concomitant]
     Active Substance: URSODIOL
     Indication: PRODUCT USED FOR UNKNOWN INDICATION
     Dosage: 600 MG, QD
     Route: 048
  18. LICKLE [Concomitant]
     Active Substance: ISOLEUCINE\LEUCINE\VALINE
     Indication: PRODUCT USED FOR UNKNOWN INDICATION
     Dosage: 3 PACKAGES, QD
     Route: 048
  19. RIVOTRIL [Concomitant]
     Active Substance: CLONAZEPAM
     Indication: PRODUCT USED FOR UNKNOWN INDICATION
     Dosage: 0.5 MG, QD
     Route: 048

REACTIONS (4)
  - Death [Fatal]
  - Renal impairment [Fatal]
  - Hypernatraemia [Not Recovered/Not Resolved]
  - Dehydration [Fatal]

NARRATIVE: CASE EVENT DATE: 20161216
